FAERS Safety Report 7792569-4 (Version None)
Quarter: 2011Q4

REPORT INFORMATION
  Report Type: 
  Country: None (occurrence: None)
  Receive Date: 20111003
  Receipt Date: 20110929
  Transmission Date: 20120403
  Serious: Yes (Disabling)
  Sender: FDA-Public Use
  Company Number: NL-ABBOTT-11P-114-0857929-00

PATIENT
  Sex: Female
  Weight: 63 kg

DRUGS (5)
  1. LEFLUNOMIDE [Concomitant]
     Indication: RHEUMATOID ARTHRITIS
     Dosage: FC - 20 MG - ONE TABLET DAILY
     Route: 048
     Dates: start: 20110701
  2. OXAZEPAM [Concomitant]
     Indication: ANXIETY
     Dosage: 10 MG - ONE TABLET TWICE DAILY AS NEEDED
     Route: 048
     Dates: start: 20110301
  3. OXAZEPAM [Concomitant]
     Indication: PANIC ATTACK
     Dates: start: 20110601
  4. HUMIRA [Suspect]
     Indication: RHEUMATOID ARTHRITIS
     Route: 058
     Dates: start: 20110601, end: 20110906
  5. ACETAMINOPHEN [Concomitant]
     Indication: ARTHRALGIA
     Dosage: 1000 MG - ONE TABLET THREE TIMES DAILY
     Route: 048
     Dates: start: 20110502

REACTIONS (4)
  - VOMITING [None]
  - ANXIETY [None]
  - DIZZINESS [None]
  - FATIGUE [None]
